FAERS Safety Report 5520392-X (Version None)
Quarter: 2007Q4

REPORT INFORMATION
  Report Type: 
  Country: None (occurrence: None)
  Receive Date: 20071115
  Receipt Date: 20071017
  Transmission Date: 20080405
  Serious: Yes (Death)
  Sender: FDA-Public Use
  Company Number: PAR_01794_2007

PATIENT
  Sex: Female

DRUGS (1)
  1. MEGACE ES [Suspect]
     Indication: WEIGHT CONTROL
     Dosage: 625 MG/5ML
     Dates: start: 20070101

REACTIONS (2)
  - NEOPLASM MALIGNANT [None]
  - ORAL INTAKE REDUCED [None]
